FAERS Safety Report 19139874 (Version 1)
Quarter: 2021Q2

REPORT INFORMATION
  Report Type: Spontaneous
  Country: JP (occurrence: JP)
  Receive Date: 20210415
  Receipt Date: 20210415
  Transmission Date: 20210717
  Serious: Yes (Other)
  Sender: FDA-Public Use
  Company Number: JP-TEVA-2021-JP-1902238

PATIENT
  Age: 74 Year
  Sex: Male

DRUGS (6)
  1. CARBOPLATIN. [Suspect]
     Active Substance: CARBOPLATIN
     Indication: POROCARCINOMA
     Dosage: AREA UNDER THE CURVE, 5 MG/ML PER MIN, EVERY 4 WEEKS
  2. EPIRUBICIN [Suspect]
     Active Substance: EPIRUBICIN
     Indication: METASTATIC NEOPLASM
  3. CARBOPLATIN. [Suspect]
     Active Substance: CARBOPLATIN
     Indication: METASTATIC NEOPLASM
  4. EPIRUBICIN [Suspect]
     Active Substance: EPIRUBICIN
     Indication: ECCRINE CARCINOMA
  5. EPIRUBICIN [Suspect]
     Active Substance: EPIRUBICIN
     Indication: POROCARCINOMA
     Dosage: EVERY 4 WEEKS
     Route: 065
  6. CARBOPLATIN. [Suspect]
     Active Substance: CARBOPLATIN
     Indication: ECCRINE CARCINOMA

REACTIONS (1)
  - Cardiotoxicity [Unknown]
